FAERS Safety Report 20430692 (Version 1)
Quarter: 2022Q1

REPORT INFORMATION
  Report Type: Report from Study
  Country: FR (occurrence: FR)
  Receive Date: 20220204
  Receipt Date: 20220204
  Transmission Date: 20220424
  Serious: Yes (Hospitalization, Other)
  Sender: FDA-Public Use
  Company Number: FR-SERVIER-S21002175

PATIENT

DRUGS (5)
  1. PEGASPARGASE [Suspect]
     Active Substance: PEGASPARGASE
     Indication: Acute lymphocytic leukaemia
     Dosage: 675 IU, D15, D24
     Route: 042
     Dates: start: 20210110
  2. TN UNSPECIFIED [Concomitant]
     Indication: Acute lymphocytic leukaemia
     Dosage: 16.2 MG, D1, D7, D14, D27
     Route: 042
     Dates: start: 20210105
  3. TN UNSPECIFIED [Concomitant]
     Indication: Acute lymphocytic leukaemia
     Dosage: 0.8 MG, D1, D7, D14, D27
     Route: 042
     Dates: start: 20210105
  4. TN UNSPECIFIED [Concomitant]
     Indication: Acute lymphocytic leukaemia
     Dosage: 8 MG, D2, D6, D10, D22
     Route: 037
     Dates: start: 20210107
  5. TN UNSPECIFIED [Concomitant]
     Indication: Acute lymphocytic leukaemia
     Dosage: 20 MG, D2, D6, D10, D22
     Route: 037
     Dates: start: 20210107

REACTIONS (3)
  - Blood bilirubin increased [Recovered/Resolved]
  - Candida retinitis [Recovered/Resolved]
  - Systemic candida [Recovered/Resolved]

NARRATIVE: CASE EVENT DATE: 20210126
